FAERS Safety Report 13433475 (Version 1)
Quarter: 2017Q2

REPORT INFORMATION
  Report Type: Report from Study
  Country: US (occurrence: US)
  Receive Date: 20170412
  Receipt Date: 20170412
  Transmission Date: 20170830
  Serious: Yes (Other)
  Sender: FDA-Public Use
  Company Number: US-BRISTOL-MYERS SQUIBB COMPANY-BMS-2016-095539

PATIENT
  Sex: Female

DRUGS (1)
  1. IPILIMUMAB [Suspect]
     Active Substance: IPILIMUMAB
     Indication: MALIGNANT MELANOMA
     Dosage: UNK
     Route: 065
     Dates: start: 20161026

REACTIONS (13)
  - Rash macular [Unknown]
  - Asthenia [Unknown]
  - Lymphadenopathy [Unknown]
  - Facial paralysis [Recovering/Resolving]
  - Lip swelling [Recovering/Resolving]
  - Oral pain [Recovering/Resolving]
  - Feeling cold [Unknown]
  - Nausea [Unknown]
  - Pituitary enlargement [Unknown]
  - Fatigue [Recovering/Resolving]
  - Diarrhoea [Unknown]
  - Mood swings [Unknown]
  - Headache [Unknown]
